FAERS Safety Report 8441144 (Version 4)
Quarter: 2012Q4

REPORT INFORMATION
  Report Type: 
  Country: US (occurrence: US)
  Receive Date: 20120305
  Receipt Date: 20121009
  Transmission Date: 20130627
  Serious: Yes (Hospitalization, Other)
  Sender: FDA-Public Use
  Company Number: US-009507513-1203USA00306

PATIENT

DRUGS (6)
  1. FOSAMAX [Suspect]
     Indication: OSTEOPOROSIS
     Dosage: 70 mg, UNK
     Route: 048
     Dates: start: 200108, end: 2008
  2. ALENDRONATE SODIUM [Suspect]
     Indication: OSTEOPOROSIS
     Dosage: 70 mg, UNK
     Route: 048
     Dates: start: 2008, end: 2010
  3. VITAMIN E [Concomitant]
     Dosage: 400 IU, qd
     Dates: start: 2000
  4. PYRIDOXINE [Concomitant]
     Dosage: 50 mg, qd
     Dates: start: 2000
  5. CALCIUM (UNSPECIFIED) (+) VITAMIN D (UNSPECIFIED) [Concomitant]
     Dosage: 1200-1000IU, qd
     Dates: start: 2000
  6. CRESTOR [Concomitant]

REACTIONS (15)
  - Femur fracture [Unknown]
  - Open reduction of fracture [Unknown]
  - Malignant melanoma [Unknown]
  - Ulna fracture [Unknown]
  - Humerus fracture [Unknown]
  - Tibia fracture [Unknown]
  - Closed fracture manipulation [Unknown]
  - Skin neoplasm excision [Unknown]
  - Cardiac disorder [Unknown]
  - Pubis fracture [Unknown]
  - Fall [Unknown]
  - Radius fracture [Unknown]
  - Ligament sprain [Unknown]
  - Contusion [Unknown]
  - Excoriation [Unknown]
